FAERS Safety Report 4892272-4 (Version None)
Quarter: 2006Q1

REPORT INFORMATION
  Report Type: 
  Country: None (occurrence: None)
  Receive Date: 20060125
  Receipt Date: 20060125
  Transmission Date: 20060701
  Serious: Yes (Disabling)
  Sender: FDA-Public Use
  Company Number: None

PATIENT
  Sex: Female
  Weight: 91 kg

DRUGS (12)
  1. BUSPIRONE 15 MG [Suspect]
     Indication: ANXIETY
     Dosage: 15 MG BID PRN PO
     Route: 048
     Dates: start: 20051221, end: 20060118
  2. CLINDAMYCIN HCL [Concomitant]
  3. FLEXERIL [Concomitant]
  4. PREMARIN [Concomitant]
  5. OMEPRAZOLE [Concomitant]
  6. OXYBUTYNIN [Concomitant]
  7. TYLENOL-500 [Concomitant]
  8. DOCUSATE [Concomitant]
  9. GLUCOSAMINE [Concomitant]
  10. MELATONIN [Concomitant]
  11. FISH OIL [Concomitant]
  12. EVENING PRIMROSE [Concomitant]

REACTIONS (5)
  - AGEUSIA [None]
  - BLEPHAROSPASM [None]
  - COUGH [None]
  - LARYNGITIS [None]
  - THROAT IRRITATION [None]
